FAERS Safety Report 19133021 (Version 1)
Quarter: 2021Q2

REPORT INFORMATION
  Report Type: Spontaneous
  Country: US (occurrence: US)
  Receive Date: 20210413
  Receipt Date: 20210413
  Transmission Date: 20210717
  Serious: No
  Sender: FDA-Public Use
  Company Number: None

PATIENT
  Age: 65 Year
  Sex: Female

DRUGS (1)
  1. ERLOTINIB TAB 150MG [Suspect]
     Active Substance: ERLOTINIB
     Route: 048
     Dates: start: 20200923, end: 20210413

REACTIONS (1)
  - Disease progression [None]

NARRATIVE: CASE EVENT DATE: 20210413
